FAERS Safety Report 16689594 (Version 1)
Quarter: 2019Q3

REPORT INFORMATION
  Report Type: Spontaneous
  Country: US (occurrence: US)
  Receive Date: 20190809
  Receipt Date: 20190809
  Transmission Date: 20191004
  Serious: No
  Sender: FDA-Public Use
  Company Number: US-FRESENIUS KABI-FK201908713

PATIENT

DRUGS (2)
  1. HEPARIN [Concomitant]
     Active Substance: HEPARIN SODIUM
     Indication: PRODUCT USED FOR UNKNOWN INDICATION
     Dosage: UNKNOWN
     Route: 065
  2. PROTAMINE SULFATE INJECTION, USP [Suspect]
     Active Substance: PROTAMINE SULFATE
     Indication: HEPARIN NEUTRALISATION THERAPY
     Dosage: UNKNOWN
     Route: 042
     Dates: start: 20190805, end: 20190805

REACTIONS (1)
  - Hypotension [Unknown]

NARRATIVE: CASE EVENT DATE: 20190805
